FAERS Safety Report 22590237 (Version 3)
Quarter: 2023Q2

REPORT INFORMATION
  Report Type: Spontaneous
  Country: US (occurrence: US)
  Receive Date: 20230612
  Receipt Date: 20230616
  Transmission Date: 20230721
  Serious: No
  Sender: FDA-Public Use
  Company Number: US-PFIZER INC-PV202300101166

PATIENT
  Age: 13 Year
  Sex: Male

DRUGS (2)
  1. GENOTROPIN [Suspect]
     Active Substance: SOMATROPIN
     Dosage: 2 MG, DAILY
     Dates: start: 202303
  2. GENOTROPIN [Suspect]
     Active Substance: SOMATROPIN
     Dosage: 2 MG, DAILY
     Dates: start: 20230602

REACTIONS (7)
  - Drug dose omission by device [Unknown]
  - Device defective [Unknown]
  - Device malfunction [Unknown]
  - Device leakage [Unknown]
  - Device information output issue [Unknown]
  - Device breakage [Unknown]
  - Poor quality device used [Unknown]
